FAERS Safety Report 5661529-1 (Version None)
Quarter: 2008Q1

REPORT INFORMATION
  Report Type: 
  Country: None (occurrence: None)
  Receive Date: 20080312
  Receipt Date: 20080307
  Transmission Date: 20080703
  Serious: Yes (Death, Other)
  Sender: FDA-Public Use
  Company Number: PHBS2008AU03108

PATIENT
  Age: 38 Year
  Sex: Female

DRUGS (2)
  1. VALPROATE SODIUM [Suspect]
     Indication: CONVULSION
  2. CARBAMAZEPINE [Suspect]
     Indication: CONVULSION

REACTIONS (17)
  - ATROPHY [None]
  - BLOOD CREATINE PHOSPHOKINASE INCREASED [None]
  - CEREBRAL HYPOPERFUSION [None]
  - CHOREA [None]
  - COORDINATION ABNORMAL [None]
  - DEPRESSION [None]
  - DYSARTHRIA [None]
  - DYSKINESIA [None]
  - DYSPHAGIA [None]
  - FALL [None]
  - HALLUCINATION [None]
  - MUSCLE RIGIDITY [None]
  - MUSCULOSKELETAL STIFFNESS [None]
  - PERSECUTORY DELUSION [None]
  - SPUR CELL ANAEMIA [None]
  - SUDDEN DEATH [None]
  - TREMOR [None]
